FAERS Safety Report 6371956-5 (Version None)
Quarter: 2009Q3

REPORT INFORMATION
  Report Type: 
  Country: None (occurrence: None)
  Receive Date: 20090917
  Receipt Date: 20090904
  Transmission Date: 20100115
  Serious: Yes (Death)
  Sender: FDA-Public Use
  Company Number: ADR15492009

PATIENT
  Sex: Male

DRUGS (2)
  1. CITALOPRAM HYDROBROMIDE [Suspect]
  2. ZOPICLONE [Concomitant]

REACTIONS (3)
  - ALCOHOL USE [None]
  - ASPHYXIA [None]
  - MULTIPLE DRUG OVERDOSE [None]
